FAERS Safety Report 7378406-0 (Version None)
Quarter: 2011Q1

REPORT INFORMATION
  Report Type: 
  Country: None (occurrence: None)
  Receive Date: 20110317
  Receipt Date: 20110303
  Transmission Date: 20110831
  Serious: Yes (Other)
  Sender: FDA-Public Use
  Company Number: NGX_00349_2011

PATIENT
  Sex: Female

DRUGS (1)
  1. QUTENZA [Suspect]
     Indication: PRODUCT USED FOR UNKNOWN INDICATION
     Dosage: DF
     Dates: start: 20110303

REACTIONS (7)
  - EYE IRRITATION [None]
  - PRURITUS [None]
  - URTICARIA [None]
  - SWOLLEN TONGUE [None]
  - THROAT IRRITATION [None]
  - HYPERSENSITIVITY [None]
  - ACCIDENTAL EXPOSURE [None]
